FAERS Safety Report 8312127-2 (Version None)
Quarter: 2012Q2

REPORT INFORMATION
  Report Type: 
  Country: None (occurrence: None)
  Receive Date: 20120425
  Receipt Date: 20120420
  Transmission Date: 20120825
  Serious: Yes (Hospitalization)
  Sender: FDA-Public Use
  Company Number: BR-PFIZER INC-2012098637

PATIENT
  Age: 82 Year
  Sex: Female

DRUGS (5)
  1. NORVASC [Suspect]
     Indication: HYPERTENSION
     Dosage: 10 MG, 1X/DAY
     Route: 048
     Dates: start: 20100101
  2. OLMESARTAN MEDOXOMIL AND HYDROCHLOROTHIZIDE [Suspect]
     Indication: HYPERTENSION
     Dosage: 40 MG/25 MG, 1X/DAY
     Route: 048
     Dates: start: 20090101
  3. CEBRALAT [Concomitant]
  4. VERAPAMIL [Concomitant]
  5. DAFLON [Concomitant]

REACTIONS (2)
  - BLOOD PRESSURE DECREASED [None]
  - PNEUMONIA [None]
